FAERS Safety Report 7076383-3 (Version None)
Quarter: 2010Q4

REPORT INFORMATION
  Report Type: 
  Country: None (occurrence: None)
  Receive Date: 20101021
  Receipt Date: 20101008
  Transmission Date: 20110411
  Serious: Yes (Death, Other)
  Sender: FDA-Public Use
  Company Number: 2010P1001696

PATIENT
  Sex: Male

DRUGS (2)
  1. COLCHICINE [Suspect]
     Dosage: TID;PO
     Route: 048
     Dates: start: 20100124, end: 20100210
  2. DILTIAZEM [Suspect]

REACTIONS (7)
  - DYSPHAGIA [None]
  - HEART RATE IRREGULAR [None]
  - LEUKOPENIA [None]
  - OFF LABEL USE [None]
  - PNEUMONIA [None]
  - SEPTIC SHOCK [None]
  - UNRESPONSIVE TO STIMULI [None]
